FAERS Safety Report 9518190 (Version 1)
Quarter: 2013Q3

REPORT INFORMATION
  Report Type: Spontaneous
  Country: FR (occurrence: FR)
  Receive Date: 20130912
  Receipt Date: 20130912
  Transmission Date: 20140515
  Serious: Yes (Life-Threatening, Hospitalization)
  Sender: FDA-Public Use
  Company Number: FR-JNJFOC-20130902249

PATIENT
  Age: 36 Year
  Sex: Female

DRUGS (1)
  1. TRIELLA [Suspect]
     Indication: CONTRACEPTION
     Route: 048
     Dates: start: 1990, end: 20091030

REACTIONS (3)
  - Ischaemic stroke [Recovered/Resolved]
  - Hemiparesis [Recovered/Resolved]
  - Speech disorder [Recovered/Resolved]
